FAERS Safety Report 8818644 (Version 1)
Quarter: 2012Q4

REPORT INFORMATION
  Report Type: 
  Country: SE (occurrence: SE)
  Receive Date: 20121001
  Receipt Date: 20121001
  Transmission Date: 20130627
  Serious: Yes (Hospitalization, Other)
  Sender: FDA-Public Use
  Company Number: PHHY2012SE084825

PATIENT
  Sex: Female

DRUGS (2)
  1. VOLTAREN [Suspect]
  2. CELEBRA [Concomitant]

REACTIONS (7)
  - Nephrolithiasis [Not Recovered/Not Resolved]
  - Vaginal ulceration [Unknown]
  - Neoplasm malignant [Unknown]
  - Hypertension [Unknown]
  - Blood glucose increased [Unknown]
  - Red blood cell sedimentation rate increased [Unknown]
  - Myalgia [Unknown]
